FAERS Safety Report 8571985-7 (Version None)
Quarter: 2012Q3

REPORT INFORMATION
  Report Type: 
  Country: None (occurrence: None)
  Receive Date: 20120806
  Receipt Date: 20120727
  Transmission Date: 20120928
  Serious: Yes (Hospitalization)
  Sender: FDA-Public Use
  Company Number: US-BAYER-2012-017460

PATIENT
  Age: 35 Year
  Sex: Female
  Weight: 107 kg

DRUGS (4)
  1. SINGULAIR [Concomitant]
     Dosage: 10 MG, DAILY
  2. YAZ [Suspect]
     Indication: ACNE
     Dosage: UNK
     Dates: start: 20090501, end: 20100201
  3. YAZ [Suspect]
     Indication: PREMENSTRUAL SYNDROME
  4. IBUPROFEN [Concomitant]
     Dosage: 200 MG, 4 TABLETS AS NEEDED

REACTIONS (3)
  - PULMONARY EMBOLISM [None]
  - PAIN [None]
  - DEEP VEIN THROMBOSIS [None]
